FAERS Safety Report 5753907-7 (Version None)
Quarter: 2008Q2

REPORT INFORMATION
  Report Type: 
  Country: None (occurrence: None)
  Receive Date: 20080530
  Receipt Date: 20080523
  Transmission Date: 20081010
  Serious: Yes (Death, Hospitalization)
  Sender: FDA-Public Use
  Company Number: B0522177A

PATIENT
  Age: 74 Year
  Sex: Male

DRUGS (5)
  1. ARIXTRA [Suspect]
     Indication: DRUG USE FOR UNKNOWN INDICATION
     Dosage: 2.5MG PER DAY
     Route: 058
     Dates: start: 20080415, end: 20080427
  2. METHOTREXATE [Concomitant]
     Dosage: 5MG TWICE PER DAY
     Route: 048
     Dates: start: 20080415, end: 20080424
  3. BRISTOPEN [Concomitant]
     Dosage: 4UNIT PER DAY
     Route: 042
     Dates: start: 20080423, end: 20080426
  4. OFLOCET [Concomitant]
     Dosage: 2UNIT PER DAY
     Route: 042
  5. RIFAMPICIN [Concomitant]
     Dosage: 2INJ PER DAY
     Route: 042

REACTIONS (6)
  - ANAEMIA [None]
  - CARDIAC ARREST [None]
  - DUODENAL ULCER [None]
  - GENERAL PHYSICAL HEALTH DETERIORATION [None]
  - HAEMORRHAGE [None]
  - MELAENA [None]
